FAERS Safety Report 11616563 (Version 2)
Quarter: 2016Q2

REPORT INFORMATION
  Report Type: Spontaneous
  Country: US (occurrence: US)
  Receive Date: 20151009
  Receipt Date: 20160520
  Transmission Date: 20160815
  Serious: Yes (Other)
  Sender: FDA-Public Use
  Company Number: US-MDT-ADR-2015-01933

PATIENT
  Age: 29 Year
  Sex: Male

DRUGS (4)
  1. LIORESAL [Suspect]
     Active Substance: BACLOFEN
     Dosage: 580-585MCG/DAY
     Route: 037
  2. LIORESAL [Suspect]
     Active Substance: BACLOFEN
     Dosage: 559MCG/DAY
     Route: 037
     Dates: end: 20150930
  3. LIORESAL [Suspect]
     Active Substance: BACLOFEN
     Dosage: 449MCG/DAY
     Route: 037
     Dates: start: 20150930
  4. BACLOFEN. [Suspect]
     Active Substance: BACLOFEN
     Route: 048

REACTIONS (4)
  - Muscle spasticity [Unknown]
  - Unevaluable event [Unknown]
  - Lethargy [Unknown]
  - Overdose [Unknown]

NARRATIVE: CASE EVENT DATE: 20150930
